FAERS Safety Report 7581068-0 (Version None)
Quarter: 2011Q2

REPORT INFORMATION
  Report Type: 
  Country: None (occurrence: None)
  Receive Date: 20110629
  Receipt Date: 20110623
  Transmission Date: 20111010
  Serious: Yes (Death)
  Sender: FDA-Public Use
  Company Number: PHHY2011AU56909

PATIENT
  Age: 30 Year

DRUGS (1)
  1. METHADONE HCL [Suspect]
     Dosage: UNK

REACTIONS (3)
  - BRONCHOPNEUMONIA [None]
  - ACCIDENT [None]
  - HEAD INJURY [None]
